FAERS Safety Report 16554402 (Version 1)
Quarter: 2019Q3

REPORT INFORMATION
  Report Type: Spontaneous
  Country: US (occurrence: US)
  Receive Date: 20190710
  Receipt Date: 20190710
  Transmission Date: 20191004
  Serious: No
  Sender: FDA-Public Use
  Company Number: US-NEOS THERAPEUTICS, LP-2019NEO00033

PATIENT
  Sex: Male
  Weight: 88.44 kg

DRUGS (4)
  1. COTEMPLA XR-ODT [Suspect]
     Active Substance: METHYLPHENIDATE
     Indication: ATTENTION DEFICIT/HYPERACTIVITY DISORDER
     Dosage: 51.8 MG, 1X/DAY
     Route: 048
     Dates: start: 2018, end: 201905
  2. ABILIFY [Concomitant]
     Active Substance: ARIPIPRAZOLE
  3. COTEMPLA XR-ODT [Suspect]
     Active Substance: METHYLPHENIDATE
     Indication: AUTISM SPECTRUM DISORDER
     Dosage: 25.9 MG, 1X/DAY
     Route: 048
     Dates: start: 201905
  4. GUANFACINE. [Concomitant]
     Active Substance: GUANFACINE

REACTIONS (2)
  - Retching [Recovered/Resolved]
  - Vomiting [Recovered/Resolved]

NARRATIVE: CASE EVENT DATE: 2018
